FAERS Safety Report 24463427 (Version 1)
Quarter: 2024Q4

REPORT INFORMATION
  Report Type: Report from Study
  Country: US (occurrence: US)
  Receive Date: 20241018
  Receipt Date: 20241018
  Transmission Date: 20250115
  Serious: No
  Sender: ROCHE
  Company Number: US-ROCHE-3195033

PATIENT
  Age: 44 Year
  Sex: Female

DRUGS (2)
  1. XOLAIR [Suspect]
     Active Substance: OMALIZUMAB
     Indication: Chronic spontaneous urticaria
     Route: 058
  2. XOLAIR [Suspect]
     Active Substance: OMALIZUMAB

REACTIONS (6)
  - Hypersensitivity [Recovered/Resolved]
  - Sneezing [Unknown]
  - Pyrexia [Unknown]
  - Urticaria [Unknown]
  - Headache [Unknown]
  - Immunosuppression [Unknown]

NARRATIVE: CASE EVENT DATE: 20221003
